FAERS Safety Report 25359076 (Version 3)
Quarter: 2025Q3

REPORT INFORMATION
  Report Type: Spontaneous
  Country: EU (occurrence: EU)
  Receive Date: 20250526
  Receipt Date: 20250723
  Transmission Date: 20251020
  Serious: Yes (Disabling, Other)
  Sender: JAZZ
  Company Number: EU-JAZZ PHARMACEUTICALS-2025-SE-013257

PATIENT
  Age: 15 Year

DRUGS (10)
  1. CANNABIDIOL [Suspect]
     Active Substance: CANNABIDIOL
     Indication: Tuberous sclerosis complex
     Dosage: 1.5 MILLILITER, BID FOR 2 WEEKS
  2. CANNABIDIOL [Suspect]
     Active Substance: CANNABIDIOL
     Dosage: 3 MILLILITER, BID
  3. CANNABIDIOL [Suspect]
     Active Substance: CANNABIDIOL
     Dosage: 100 MILLIGRAM, BID
  4. VIGABATRIN [Concomitant]
     Active Substance: VIGABATRIN
     Indication: Product used for unknown indication
  5. LAMOTRIGINE [Concomitant]
     Active Substance: LAMOTRIGINE
     Indication: Product used for unknown indication
  6. EVEROLIMUS [Concomitant]
     Active Substance: EVEROLIMUS
     Indication: Product used for unknown indication
  7. SERTRALINE [Concomitant]
     Active Substance: SERTRALINE HYDROCHLORIDE
     Indication: Product used for unknown indication
  8. METHYLPHENIDATE [Concomitant]
     Active Substance: METHYLPHENIDATE
     Indication: Product used for unknown indication
  9. DESOGESTREL [Concomitant]
     Active Substance: DESOGESTREL
     Indication: Product used for unknown indication
  10. MELATONIN [Concomitant]
     Active Substance: MELATONIN
     Indication: Product used for unknown indication

REACTIONS (3)
  - Seizure [Recovering/Resolving]
  - Petit mal epilepsy [Recovering/Resolving]
  - Tonic convulsion [Unknown]
